FAERS Safety Report 19232447 (Version 1)
Quarter: 2021Q2

REPORT INFORMATION
  Report Type: Spontaneous
  Country: PL (occurrence: PL)
  Receive Date: 20210507
  Receipt Date: 20210507
  Transmission Date: 20210717
  Serious: Yes (Hospitalization)
  Sender: FDA-Public Use
  Company Number: PL-TEVA-2021-PL-1908114

PATIENT
  Age: 75 Year
  Sex: Female

DRUGS (2)
  1. METYPRED 16 MG [Concomitant]
     Indication: RHEUMATOID ARTHRITIS
     Dosage: 16 MG
     Route: 048
  2. NAMAXIR 25 MG [Suspect]
     Active Substance: METHOTREXATE
     Indication: RHEUMATOID ARTHRITIS
     Dosage: 25 MG
     Route: 058

REACTIONS (4)
  - Folate deficiency [Recovering/Resolving]
  - Leukopenia [Recovering/Resolving]
  - Thrombocytopenia [Recovering/Resolving]
  - Urinary tract infection [Recovering/Resolving]

NARRATIVE: CASE EVENT DATE: 20201230
